FAERS Safety Report 5404174-5 (Version None)
Quarter: 2007Q3

REPORT INFORMATION
  Report Type: 
  Country: None (occurrence: None)
  Receive Date: 20070802
  Receipt Date: 20070726
  Transmission Date: 20080115
  Serious: Yes (Other)
  Sender: FDA-Public Use
  Company Number: GB-BRISTOL-MYERS SQUIBB COMPANY-13860085

PATIENT
  Sex: Female

DRUGS (6)
  1. GLUCOPHAGE XR [Suspect]
     Indication: TYPE 2 DIABETES MELLITUS
     Route: 048
     Dates: start: 20070515
  2. METFORMIN HCL [Suspect]
  3. GAVISCON [Concomitant]
  4. METOPROLOL SUCCINATE [Concomitant]
  5. CO-PROXAMOL [Concomitant]
  6. GLYCERYL TRINITRATE [Concomitant]

REACTIONS (2)
  - DIARRHOEA [None]
  - WEIGHT INCREASED [None]
